FAERS Safety Report 9527061 (Version 5)
Quarter: 2015Q4

REPORT INFORMATION
  Report Type: Spontaneous
  Country: US (occurrence: US)
  Receive Date: 20130916
  Receipt Date: 20151125
  Transmission Date: 20160305
  Serious: Yes (Hospitalization, Other)
  Sender: FDA-Public Use
  Company Number: US-009507513-1309USA006814

PATIENT
  Sex: Female
  Weight: 50.9 kg

DRUGS (5)
  1. FOSAMAX [Suspect]
     Active Substance: ALENDRONATE SODIUM
     Indication: OSTEOPENIA
  2. CENTRUM (MINERALS (UNSPECIFIED) (+) VITAMINS (UNSPECIFIED)) [Concomitant]
     Dosage: UNK UNK, QD
     Route: 048
     Dates: start: 1990
  3. FOSAMAX [Suspect]
     Active Substance: ALENDRONATE SODIUM
     Indication: OSTEOPOROSIS
     Dosage: 10 MG, UNK
     Route: 048
     Dates: start: 1996, end: 2000
  4. FOSAMAX [Suspect]
     Active Substance: ALENDRONATE SODIUM
     Indication: OSTEOPENIA
     Dosage: 70 MG, UNK
     Route: 048
     Dates: start: 2000, end: 201107
  5. CALCIUM (UNSPECIFIED) [Concomitant]
     Active Substance: CALCIUM
     Dosage: UNK
     Route: 048
     Dates: start: 1990

REACTIONS (23)
  - Pain in extremity [Unknown]
  - Enthesopathy [Unknown]
  - Breast cancer stage II [Unknown]
  - Low turnover osteopathy [Unknown]
  - Vitamin D deficiency [Unknown]
  - Radius fracture [Unknown]
  - Astigmatism [Unknown]
  - Arthralgia [Unknown]
  - Arthritis [Unknown]
  - Visual impairment [Unknown]
  - Depression [Unknown]
  - Pain in extremity [Unknown]
  - Hypercholesterolaemia [Unknown]
  - Radiotherapy [Unknown]
  - Anxiety [Unknown]
  - Insomnia [Unknown]
  - Urinary incontinence [Unknown]
  - Lymphadenectomy [Unknown]
  - Femur fracture [Unknown]
  - Blood cholesterol increased [Unknown]
  - Neck mass [Unknown]
  - Rotator cuff syndrome [Unknown]
  - Tooth fracture [Unknown]

NARRATIVE: CASE EVENT DATE: 1997
